FAERS Safety Report 7769831-4 (Version None)
Quarter: 2011Q3

REPORT INFORMATION
  Report Type: 
  Country: None (occurrence: None)
  Receive Date: 20110922
  Receipt Date: 20110502
  Transmission Date: 20111222
  Serious: No
  Sender: FDA-Public Use
  Company Number: US-ASTRAZENECA-2011SE26464

PATIENT
  Age: 32 Year
  Sex: Female

DRUGS (1)
  1. SEROQUEL XR [Suspect]
     Route: 048

REACTIONS (4)
  - LIP SWELLING [None]
  - SWOLLEN TONGUE [None]
  - SWELLING FACE [None]
  - EYE SWELLING [None]
